FAERS Safety Report 8945177 (Version 1)
Quarter: 2012Q4

REPORT INFORMATION
  Report Type: 
  Country: US (occurrence: US)
  Receive Date: 20121204
  Receipt Date: 20121204
  Transmission Date: 20130627
  Serious: No
  Sender: FDA-Public Use
  Company Number: US-009507513-1212USA000463

PATIENT
  Sex: Female

DRUGS (2)
  1. SAPHRIS [Suspect]
     Indication: BIPOLAR DISORDER
  2. SAPHRIS [Suspect]
     Indication: SCHIZOPHRENIA

REACTIONS (2)
  - Glossitis [Recovering/Resolving]
  - Hypoaesthesia oral [Recovering/Resolving]
